FAERS Safety Report 11789603 (Version 1)
Quarter: 2015Q4

REPORT INFORMATION
  Report Type: Spontaneous
  Country: GR (occurrence: GR)
  Receive Date: 20151201
  Receipt Date: 20151201
  Transmission Date: 20160305
  Serious: Yes (Other)
  Sender: FDA-Public Use
  Company Number: GR-009507513-1511GRC015754

PATIENT
  Age: 69 Year
  Sex: Male

DRUGS (2)
  1. SALOSPIR [Concomitant]
     Active Substance: ASPIRIN\CAFFEINE
  2. JANUMET [Suspect]
     Active Substance: METFORMIN HYDROCHLORIDE\SITAGLIPTIN PHOSPHATE
     Indication: TYPE 2 DIABETES MELLITUS
     Dosage: 2 TABLETS EVERY DAY
     Route: 048
     Dates: start: 2012

REACTIONS (1)
  - Myocardial infarction [Unknown]

NARRATIVE: CASE EVENT DATE: 2013
